FAERS Safety Report 12170496 (Version 2)
Quarter: 2018Q2

REPORT INFORMATION
  Report Type: Spontaneous
  Country: JP (occurrence: JP)
  Receive Date: 20160311
  Receipt Date: 20180430
  Transmission Date: 20180711
  Serious: Yes (Other)
  Sender: FDA-Public Use
  Company Number: JP-UCBSA-2016007851

PATIENT
  Sex: Female

DRUGS (1)
  1. E KEPPRA [Suspect]
     Active Substance: LEVETIRACETAM
     Indication: PARTIAL SEIZURES
     Dosage: 500 MG, ONCE DAILY (QD) TOOK ONLY ONE TABLET
     Route: 048

REACTIONS (10)
  - Drug dose omission [Unknown]
  - Feeling cold [Unknown]
  - Thinking abnormal [Unknown]
  - Agitation [Unknown]
  - Dizziness [Unknown]
  - Drug reaction with eosinophilia and systemic symptoms [Unknown]
  - Rhabdomyolysis [Unknown]
  - Myoglobinuria [Unknown]
  - Insomnia [Unknown]
  - Heart rate increased [Unknown]
